FAERS Safety Report 7046189-X (Version None)
Quarter: 2010Q4

REPORT INFORMATION
  Report Type: 
  Country: None (occurrence: None)
  Receive Date: 20101014
  Receipt Date: 20101004
  Transmission Date: 20110411
  Serious: Yes (Other)
  Sender: FDA-Public Use
  Company Number: JP-PFIZER INC-2010079768

PATIENT
  Age: 62 Year
  Sex: Male
  Weight: 62 kg

DRUGS (15)
  1. ZYVOX [Suspect]
     Indication: STAPHYLOCOCCAL INFECTION
     Dosage: 600 MG, 1X/DAY
     Route: 048
     Dates: start: 20100419, end: 20100505
  2. ACECOL [Concomitant]
     Indication: HYPERTENSION
     Dosage: 1 MG, 1X/DAY AT MORNING
     Route: 048
     Dates: end: 20100507
  3. ACECOL [Concomitant]
     Dosage: 2 MG, 1X/DAY AT EVENING
     Route: 048
     Dates: end: 20100507
  4. ADALAT CC [Concomitant]
     Indication: HYPERTENSION
     Dosage: 40 MG, 1X/DAY AT MORNING
     Route: 048
     Dates: end: 20100506
  5. ADALAT CC [Concomitant]
     Dosage: 20 MG, 1X/DAY AT EVENING
     Route: 048
     Dates: end: 20100506
  6. SHAKUYAKU-KANZO-TO [Concomitant]
     Dosage: 2.5 G, 1X/DAY
     Route: 048
  7. CARBENIN [Concomitant]
     Dosage: 0.5 G, 1X/DAY
     Route: 042
     Dates: start: 20100408, end: 20100413
  8. CINACALCET HYDROCHLORIDE [Concomitant]
     Dosage: 25 MG, 1X/DAY
     Route: 048
  9. OLMETEC [Concomitant]
     Indication: HYPERTENSION
     Dosage: 40 MG, 1X/DAY
     Route: 048
     Dates: end: 20100507
  10. LANTHANUM CARBONATE [Concomitant]
     Indication: INFECTION
     Dosage: 250 MG, 3X/DAY
     Route: 048
  11. GALENIC /PANIPENEM/BETAMIPRON/ [Concomitant]
     Indication: INFECTION
     Dosage: 0.5 G, 1X/DAY
     Route: 041
     Dates: start: 20100408, end: 20100412
  12. VANCOMYCIN [Concomitant]
     Indication: INFECTION
     Dosage: 0.5 G, 1X/DAY
     Route: 041
     Dates: start: 20100413, end: 20100413
  13. MEIACT [Concomitant]
     Indication: INFECTION
     Dosage: 100 MG, 2X/DAY
     Route: 048
     Dates: start: 20100407, end: 20100414
  14. FLOMOX [Concomitant]
     Indication: INFECTION
     Dosage: 100 MG, 2X/DAY
     Route: 048
     Dates: start: 20100413, end: 20100419
  15. ULCERLMIN [Concomitant]
     Dosage: 1 G, 1X/DAY
     Route: 048

REACTIONS (4)
  - DECREASED APPETITE [None]
  - DEHYDRATION [None]
  - HYPOTENSION [None]
  - NAUSEA [None]
